APPROVED DRUG PRODUCT: VFEND
Active Ingredient: VORICONAZOLE
Strength: 200MG/VIAL
Dosage Form/Route: POWDER;INTRAVENOUS
Application: N021267 | Product #001 | TE Code: AP
Applicant: PF PRISM CV
Approved: May 24, 2002 | RLD: Yes | RS: Yes | Type: RX